FAERS Safety Report 5027620-8 (Version None)
Quarter: 2006Q2

REPORT INFORMATION
  Report Type: 
  Country: None (occurrence: None)
  Receive Date: 20060616
  Receipt Date: 20060612
  Transmission Date: 20061013
  Serious: Yes (Other)
  Sender: FDA-Public Use
  Company Number: ES-JNJFOC-20060602274

PATIENT
  Age: 93 Year
  Sex: Female

DRUGS (5)
  1. TAVANIC [Suspect]
     Indication: UPPER RESPIRATORY TRACT INFECTION
     Route: 042
     Dates: start: 20060504, end: 20060504
  2. TAVANIC [Suspect]
     Route: 048
     Dates: start: 20060505, end: 20060506
  3. TERTENSIF [Concomitant]
     Indication: HYPERTENSION
     Route: 065
  4. ADIRO [Concomitant]
     Indication: ATRIAL FIBRILLATION
     Route: 065
  5. NITRODERM [Concomitant]
     Indication: ATRIAL FIBRILLATION
     Route: 065

REACTIONS (4)
  - DELIRIUM [None]
  - DISORIENTATION [None]
  - HALLUCINATION [None]
  - VOMITING [None]
